FAERS Safety Report 5879198-4 (Version None)
Quarter: 2008Q3

REPORT INFORMATION
  Report Type: 
  Country: None (occurrence: None)
  Receive Date: 20080912
  Receipt Date: 20080902
  Transmission Date: 20090109
  Serious: Yes (Other)
  Sender: FDA-Public Use
  Company Number: US-ROCHE-584181

PATIENT
  Age: 22 Year
  Sex: Female

DRUGS (1)
  1. ISOTRETINOIN [Suspect]
     Dosage: THE PATIENT WAS DISPENSED ACCUTANE CAPSULE IN MAY 2008 (APPROXIMATELY)
     Route: 048

REACTIONS (1)
  - STEVENS-JOHNSON SYNDROME [None]
